FAERS Safety Report 18432967 (Version 1)
Quarter: 2020Q4

REPORT INFORMATION
  Report Type: Report from Study
  Country: US (occurrence: US)
  Receive Date: 20201027
  Receipt Date: 20201027
  Transmission Date: 20210114
  Serious: Yes (Other)
  Sender: FDA-Public Use
  Company Number: US-GLAXOSMITHKLINE-US2020AMR122656

PATIENT
  Age: 79 Year
  Sex: Female

DRUGS (4)
  1. NIRAPARIB [Suspect]
     Active Substance: NIRAPARIB
     Dosage: 200 MG, QD
     Dates: start: 20201014
  2. NIRAPARIB [Suspect]
     Active Substance: NIRAPARIB
     Dosage: 200 MG, QOD
     Route: 065
     Dates: start: 202009
  3. NIRAPARIB [Suspect]
     Active Substance: NIRAPARIB
     Indication: OVARIAN CANCER
     Dosage: 300 MG, QD
     Route: 065
     Dates: start: 20200629
  4. LAVENDER OIL [Suspect]
     Active Substance: LAVENDER OIL
     Indication: INSOMNIA
     Dosage: UNK

REACTIONS (17)
  - Ascites [Unknown]
  - Constipation [Unknown]
  - Insomnia [Unknown]
  - Back pain [Unknown]
  - Contusion [Unknown]
  - Vision blurred [Not Recovered/Not Resolved]
  - Cognitive disorder [Unknown]
  - Abdominal distension [Unknown]
  - Dizziness [Unknown]
  - Full blood count decreased [Unknown]
  - Night sweats [Unknown]
  - Fatigue [Unknown]
  - Stomatitis [Recovered/Resolved]
  - Product dose omission issue [Unknown]
  - Anaemia [Recovered/Resolved]
  - Blood urine present [Unknown]
  - Middle insomnia [Unknown]

NARRATIVE: CASE EVENT DATE: 202009
